FAERS Safety Report 8290328-X (Version None)
Quarter: 2012Q2

REPORT INFORMATION
  Report Type: 
  Country: None (occurrence: None)
  Receive Date: 20120417
  Receipt Date: 20120412
  Transmission Date: 20120825
  Serious: Yes (Hospitalization, Other)
  Sender: FDA-Public Use
  Company Number: LT-AMGEN-KDC443556

PATIENT
  Age: 78 Year
  Sex: Male

DRUGS (5)
  1. DENOSUMAB [Suspect]
     Indication: METASTASES TO BONE
     Dosage: UNK UNK, Q4WK
     Route: 058
     Dates: start: 20100325, end: 20101006
  2. CALCIGRAN FORTE [Concomitant]
     Dosage: UNK UNK, BID
     Route: 048
     Dates: start: 20080102
  3. SERMION [Concomitant]
     Dosage: 10 MG, QD
     Route: 048
     Dates: start: 20080730
  4. PROPAFENONE HCL [Concomitant]
     Dosage: 180 MG, BID
     Route: 048
     Dates: start: 20081021
  5. PRESTARIUM [Concomitant]
     Dosage: 5 MG, QD
     Dates: start: 20081025

REACTIONS (2)
  - PAIN IN JAW [None]
  - OSTEOMYELITIS [None]
